FAERS Safety Report 9369889 (Version 2)
Quarter: 2013Q3

REPORT INFORMATION
  Report Type: Spontaneous
  Country: US (occurrence: US)
  Receive Date: 20130626
  Receipt Date: 20130916
  Transmission Date: 20140515
  Serious: Yes (Hospitalization, Other)
  Sender: FDA-Public Use
  Company Number: US-PFIZER INC-2013186679

PATIENT
  Age: 45 Year
  Sex: Female
  Weight: 72.56 kg

DRUGS (5)
  1. LYRICA [Suspect]
     Indication: NEURALGIA
     Dosage: 150 MG, 2X/DAY
     Route: 048
  2. NEURONTIN [Suspect]
     Indication: BACK PAIN
     Dosage: 800 MG, UNK
     Route: 048
  3. NORVASC [Suspect]
     Indication: HYPERTENSION
     Dosage: 10 MG, 1X/DAY
  4. DEPO-ESTRADIOL [Suspect]
     Dosage: 2 CC,1X/MONTH
  5. HYDROCODONE [Concomitant]
     Dosage: UNK

REACTIONS (5)
  - Off label use [Unknown]
  - Intentional drug misuse [Unknown]
  - Hiatus hernia [Unknown]
  - Gastric ulcer [Unknown]
  - Pain [Unknown]
